FAERS Safety Report 15843835 (Version 1)
Quarter: 2019Q1

REPORT INFORMATION
  Report Type: Spontaneous
  Country: GR (occurrence: GR)
  Receive Date: 20190118
  Receipt Date: 20190118
  Transmission Date: 20190417
  Serious: Yes (Other)
  Sender: FDA-Public Use
  Company Number: GR-ELI_LILLY_AND_COMPANY-GR201901003089

PATIENT
  Age: 53 Year
  Sex: Female

DRUGS (7)
  1. ODASOL [OMEPRAZOLE] [Concomitant]
     Indication: ABDOMINAL DISCOMFORT
     Dosage: UNK, UNKNOWN
     Route: 065
  2. DUPHALAC [Concomitant]
     Active Substance: LACTULOSE
     Indication: ABDOMINAL DISCOMFORT
     Dosage: UNK, UNKNOWN
     Route: 065
  3. HUMALOG [Suspect]
     Active Substance: INSULIN LISPRO
     Dosage: 2-7 U, DAILY
     Route: 065
     Dates: start: 2007
  4. INSULIN GLARGINE [Suspect]
     Active Substance: INSULIN GLARGINE
     Indication: DIABETES MELLITUS
     Dosage: 18 U, DAILY
     Route: 058
     Dates: start: 2007
  5. FUROSEMIDE. [Suspect]
     Active Substance: FUROSEMIDE
     Indication: DIABETIC NEPHROPATHY
     Dosage: UNK UNK, UNKNOWN
     Route: 048
  6. VELPHORO [Concomitant]
     Active Substance: FERRIC OXYHYDROXIDE
     Indication: BLOOD PHOSPHORUS
     Dosage: UNK, UNKNOWN
     Route: 065
  7. HUMALOG [Suspect]
     Active Substance: INSULIN LISPRO
     Indication: DIABETES MELLITUS
     Dosage: 7 U, UNKNOWN
     Route: 065

REACTIONS (5)
  - Hypoglycaemia [Unknown]
  - Pain in extremity [Unknown]
  - Diabetic foot [Unknown]
  - Diabetic nephropathy [Unknown]
  - Epilepsy [Unknown]
